FAERS Safety Report 11528772 (Version 1)
Quarter: 2015Q3

REPORT INFORMATION
  Report Type: Spontaneous
  Country: US (occurrence: None)
  Receive Date: 20150918
  Receipt Date: 20150918
  Transmission Date: 20151125
  Serious: Yes (Hospitalization)
  Sender: FDA-Public Use
  Company Number: None

PATIENT
  Age: 79 Year
  Sex: Female
  Weight: 58 kg

DRUGS (2)
  1. ZOLEDRONIC [Suspect]
     Active Substance: ZOLEDRONIC ACID
     Indication: OSTEOPOROSIS
     Dosage: 1 UNIT   YEARLY
     Route: 042
     Dates: start: 20150914, end: 20150914
  2. .9NS [Concomitant]

REACTIONS (7)
  - Head injury [None]
  - Faecal incontinence [None]
  - Syncope [None]
  - Musculoskeletal pain [None]
  - Pain in jaw [None]
  - Tenderness [None]
  - Fall [None]

NARRATIVE: CASE EVENT DATE: 20150914
